FAERS Safety Report 5015171-6 (Version None)
Quarter: 2006Q2

REPORT INFORMATION
  Report Type: 
  Country: None (occurrence: None)
  Receive Date: 20060530
  Receipt Date: 20060516
  Transmission Date: 20061013
  Serious: Yes (Other)
  Sender: FDA-Public Use
  Company Number: 14013

PATIENT
  Age: 61 Year
  Sex: Female

DRUGS (16)
  1. CISPLATIN [Suspect]
     Indication: MALIGNANT MELANOMA STAGE IV
  2. CISPLATIN [Suspect]
     Indication: MALIGNANT MELANOMA STAGE IV
  3. CISPLATIN [Suspect]
     Indication: MALIGNANT MELANOMA STAGE IV
     Dosage: 85 MG/M2 QD
  4. DACARBAZINE [Suspect]
     Indication: MALIGNANT MELANOMA STAGE IV
  5. DACARBAZINE [Suspect]
     Indication: MALIGNANT MELANOMA STAGE IV
  6. DACARBAZINE [Suspect]
     Indication: MALIGNANT MELANOMA STAGE IV
     Dosage: 160 MG/M2 QD
  7. DACARBAZINE [Suspect]
     Indication: MALIGNANT MELANOMA STAGE IV
  8. DACARBAZINE [Suspect]
     Indication: MALIGNANT MELANOMA STAGE IV
  9. TAMOXIFEN CITRATE [Suspect]
     Indication: MALIGNANT MELANOMA STAGE IV
  10. TAMOXIFEN CITRATE [Suspect]
     Indication: MALIGNANT MELANOMA STAGE IV
  11. TAMOXIFEN CITRATE [Suspect]
     Indication: MALIGNANT MELANOMA STAGE IV
     Dosage: 20 MG QD
  12. NIMUSTINE HYDROCHLORIDE [Suspect]
     Indication: MALIGNANT MELANOMA STAGE IV
  13. NIMUSTINE HYDROCHLORIDE [Suspect]
     Indication: MALIGNANT MELANOMA STAGE IV
  14. NIMUSTINE HYDROCHLORIDE [Suspect]
     Indication: MALIGNANT MELANOMA STAGE IV
     Dosage: 60 MG/M2 QD
  15. NIMUSTINE HYDROCHLORIDE [Suspect]
     Indication: MALIGNANT MELANOMA STAGE IV
  16. NIMUSTINE HYDROCHLORIDE [Suspect]
     Indication: MALIGNANT MELANOMA STAGE IV

REACTIONS (9)
  - ACUTE MYOCARDIAL INFARCTION [None]
  - BLOOD TRIGLYCERIDES INCREASED [None]
  - CORONARY ARTERY OCCLUSION [None]
  - CORONARY ARTERY THROMBOSIS [None]
  - DRUG INEFFECTIVE [None]
  - ELECTROCARDIOGRAM ST SEGMENT DEPRESSION [None]
  - ELECTROCARDIOGRAM ST SEGMENT ELEVATION [None]
  - PULMONARY ARTERIAL WEDGE PRESSURE DECREASED [None]
  - VENTRICULAR HYPOKINESIA [None]
